FAERS Safety Report 14572340 (Version 1)
Quarter: 2018Q1

REPORT INFORMATION
  Report Type: Report from Study
  Country: CA (occurrence: CA)
  Receive Date: 20180226
  Receipt Date: 20180226
  Transmission Date: 20180509
  Serious: Yes (Life-Threatening, Hospitalization)
  Sender: FDA-Public Use
  Company Number: CA-JNJFOC-20180231097

PATIENT
  Age: 75 Year
  Sex: Male

DRUGS (6)
  1. OMEPRAZOLE. [Concomitant]
     Active Substance: OMEPRAZOLE
     Dosage: STRENGTH = 20 MG
     Route: 048
  2. RANITIDINE. [Concomitant]
     Active Substance: RANITIDINE
     Dosage: STRENGTH = 150 MG
     Route: 048
  3. AVENTYL [Concomitant]
     Active Substance: NORTRIPTYLINE HYDROCHLORIDE
     Dosage: STRENGTH = 10 MG
     Route: 048
  4. IMBRUVICA [Suspect]
     Active Substance: IBRUTINIB
     Indication: WALDENSTROM^S MACROGLOBULINAEMIA
     Dosage: STRENGTH = 140 MG MG
     Route: 048
     Dates: start: 20171206
  5. PREGABALIN. [Concomitant]
     Active Substance: PREGABALIN
     Dosage: STRENGTH = 150 MG
     Route: 048
  6. PREGABALIN. [Concomitant]
     Active Substance: PREGABALIN
     Dosage: STRENGTH = 25 MG
     Route: 048

REACTIONS (1)
  - Myocardial infarction [Recovering/Resolving]

NARRATIVE: CASE EVENT DATE: 20180207
